FAERS Safety Report 14128511 (Version 5)
Quarter: 2018Q1

REPORT INFORMATION
  Report Type: Report from Study
  Country: None (occurrence: US)
  Receive Date: 20171026
  Receipt Date: 20180130
  Transmission Date: 20180508
  Serious: Yes (Other)
  Sender: FDA-Public Use
  Company Number: US-ABBVIE-17K-163-2137600-00

PATIENT
  Age: 61 Year
  Sex: Male

DRUGS (3)
  1. HUMIRA [Suspect]
     Active Substance: ADALIMUMAB
     Route: 058
  2. HUMIRA [Suspect]
     Active Substance: ADALIMUMAB
     Indication: COLITIS ULCERATIVE
     Route: 058
  3. HUMIRA [Suspect]
     Active Substance: ADALIMUMAB
     Route: 058

REACTIONS (16)
  - Hernia [Unknown]
  - Hypotension [Unknown]
  - Postoperative wound complication [Unknown]
  - Impaired healing [Unknown]
  - Skin ulcer [Unknown]
  - Procedural pain [Unknown]
  - Rectal discharge [Unknown]
  - Peripheral vascular disorder [Unknown]
  - Wound secretion [Unknown]
  - Wound haemorrhage [Unknown]
  - Dehydration [Unknown]
  - Fistula [Unknown]
  - Traumatic ulcer [Unknown]
  - Impaired healing [Unknown]
  - Rash [Unknown]
  - Blood glucose increased [Unknown]

NARRATIVE: CASE EVENT DATE: 2017
